FAERS Safety Report 9887165 (Version 1)
Quarter: 2014Q1

REPORT INFORMATION
  Report Type: Spontaneous
  Country: US (occurrence: US)
  Receive Date: 20140211
  Receipt Date: 20140211
  Transmission Date: 20141002
  Serious: No
  Sender: FDA-Public Use
  Company Number: US-BIOGENIDEC-2014BI009165

PATIENT
  Age: 58 Year
  Sex: Female

DRUGS (22)
  1. TECFIDERA [Suspect]
     Indication: MULTIPLE SCLEROSIS
     Route: 048
     Dates: start: 20131112, end: 20131118
  2. TECFIDERA [Suspect]
     Indication: MULTIPLE SCLEROSIS
     Route: 048
     Dates: start: 20131119
  3. ATENOLOL [Concomitant]
  4. MECLIZINE [Concomitant]
  5. ZOCOR [Concomitant]
  6. LEVOTHYROXINE [Concomitant]
  7. VITAMIN D [Concomitant]
  8. PREVACID [Concomitant]
  9. TRAZADONE [Concomitant]
  10. TRAZAPAM [Concomitant]
  11. PAXIL [Concomitant]
  12. POTASSIUM [Concomitant]
  13. MAGNESIUM [Concomitant]
  14. FOLIC ACID [Concomitant]
  15. PREXIMET [Concomitant]
  16. TIZANIDINE [Concomitant]
  17. OXYCODONE [Concomitant]
  18. BENTYL [Concomitant]
  19. PROPANOLOL [Concomitant]
  20. HYOSCYAMINE [Concomitant]
  21. ASPIRIN [Concomitant]
  22. LISINOPRIL [Concomitant]

REACTIONS (2)
  - Gastric disorder [Unknown]
  - Stress cardiomyopathy [Unknown]
